FAERS Safety Report 6147463-1 (Version None)
Quarter: 2009Q2

REPORT INFORMATION
  Report Type: 
  Country: None (occurrence: None)
  Receive Date: 20090408
  Receipt Date: 20090402
  Transmission Date: 20091009
  Serious: Yes (Other)
  Sender: FDA-Public Use
  Company Number: GB-ABBOTT-09P-167-0566187-00

PATIENT
  Age: 32 Year
  Sex: Female

DRUGS (3)
  1. KLARICID [Suspect]
     Indication: TONSILLITIS
     Dates: start: 20090212
  2. ACETAMINOPHEN W/ CODEINE [Concomitant]
     Indication: TONSILLITIS
     Dosage: 8/500MG
     Dates: start: 20090212, end: 20090216
  3. DICLOFENAC [Concomitant]
     Indication: DYSMENORRHOEA
     Dates: start: 20081229, end: 20090110

REACTIONS (3)
  - CHROMATURIA [None]
  - LIVER FUNCTION TEST ABNORMAL [None]
  - OEDEMA PERIPHERAL [None]
